FAERS Safety Report 25790350 (Version 1)
Quarter: 2025Q3

REPORT INFORMATION
  Report Type: Spontaneous
  Country: EU (occurrence: EU)
  Receive Date: 20250911
  Receipt Date: 20250911
  Transmission Date: 20251021
  Serious: Yes (Hospitalization)
  Sender: RANBAXY
  Company Number: EU-SUN PHARMACEUTICAL INDUSTRIES INC-2025RR-526542

PATIENT
  Age: 85 Year
  Sex: Male

DRUGS (8)
  1. LENALIDOMIDE [Suspect]
     Active Substance: LENALIDOMIDE
     Indication: Non-Hodgkin^s lymphoma
     Route: 048
     Dates: start: 20230616, end: 20240206
  2. CYANOCOBALAMIN\FOLIC ACID [Concomitant]
     Active Substance: CYANOCOBALAMIN\FOLIC ACID
     Indication: Pernicious anaemia
     Route: 048
     Dates: start: 20201110
  3. FLUVASTATIN SODIUM [Concomitant]
     Active Substance: FLUVASTATIN SODIUM
     Indication: Essential hypertension
     Route: 048
     Dates: start: 20111122
  4. CAFINITRINA [Concomitant]
     Indication: Cardiac disorder
     Route: 060
     Dates: start: 20180809
  5. OMEPRAZOLE CINFA [Concomitant]
     Indication: Diffuse large B-cell lymphoma
     Route: 048
     Dates: start: 20201230
  6. PARACETAMOL KERN PHARMA [Concomitant]
     Indication: Diffuse large B-cell lymphoma
     Route: 048
     Dates: start: 20201229
  7. BISOPROLOL FUMARATE [Concomitant]
     Active Substance: BISOPROLOL FUMARATE
     Indication: Chest pain
     Route: 048
     Dates: start: 20220216
  8. ASPIRIN [Concomitant]
     Active Substance: ASPIRIN
     Indication: Chest pain
     Route: 048
     Dates: start: 20230304

REACTIONS (2)
  - Diarrhoea [Recovered/Resolved]
  - Neutropenia [Recovered/Resolved]

NARRATIVE: CASE EVENT DATE: 20240206
